FAERS Safety Report 8240051-2 (Version None)
Quarter: 2012Q1

REPORT INFORMATION
  Report Type: 
  Country: None (occurrence: None)
  Receive Date: 20120328
  Receipt Date: 20120323
  Transmission Date: 20120608
  Serious: Yes (Hospitalization)
  Sender: FDA-Public Use
  Company Number: US-B.I. PHARMACEUTICALS,INC./RIDGEFIELD-2012-BP-05527BP

PATIENT
  Age: 83 Year
  Sex: Male

DRUGS (5)
  1. LOSARTAN POTASSIUM [Concomitant]
  2. SENNA [Concomitant]
     Indication: CONSTIPATION
  3. CARVEDILOL [Concomitant]
  4. PRADAXA [Suspect]
     Indication: ATRIAL FIBRILLATION
  5. LASIX [Concomitant]

REACTIONS (1)
  - AORTIC DISSECTION [None]
